FAERS Safety Report 15645573 (Version 1)
Quarter: 2018Q4

REPORT INFORMATION
  Report Type: Spontaneous
  Country: US (occurrence: US)
  Receive Date: 20181121
  Receipt Date: 20181121
  Transmission Date: 20190205
  Serious: Yes (Hospitalization)
  Sender: FDA-Public Use
  Company Number: US-SAOL THERAPEUTICS-2018SAO01075

PATIENT
  Sex: Male

DRUGS (4)
  1. LIORESAL [Suspect]
     Active Substance: BACLOFEN
     Indication: MUSCLE SPASTICITY
     Dosage: 550.05 ?G, \DAY
     Route: 037
     Dates: end: 2018
  2. LIORESAL [Suspect]
     Active Substance: BACLOFEN
     Dosage: 550 ?G, \DAY
     Route: 037
     Dates: start: 2018, end: 20181105
  3. LIORESAL [Suspect]
     Active Substance: BACLOFEN
     Dosage: 400 ?G, \DAY
     Route: 037
     Dates: start: 201811
  4. LIORESAL [Suspect]
     Active Substance: BACLOFEN
     Dosage: ^LOWEST POSSIBLE DOSE^
     Route: 037
     Dates: start: 20181105, end: 201811

REACTIONS (6)
  - Septic shock [Unknown]
  - Loss of consciousness [Recovered/Resolved]
  - Ureteric obstruction [Unknown]
  - Nephrolithiasis [Unknown]
  - Overdose [Unknown]
  - Lethargy [None]

NARRATIVE: CASE EVENT DATE: 201811
